FAERS Safety Report 4382020-9 (Version None)
Quarter: 2004Q2

REPORT INFORMATION
  Report Type: 
  Country: None (occurrence: None)
  Receive Date: 20040603
  Receipt Date: 20030507
  Transmission Date: 20050107
  Serious: Yes (Hospitalization)
  Sender: FDA-Public Use
  Company Number: 200314382US

PATIENT

DRUGS (2)
  1. LOVENOX [Suspect]
     Indication: DEEP VEIN THROMBOSIS
     Dates: end: 20030506
  2. WARFARIN SODIUM [Concomitant]

REACTIONS (1)
  - MUSCLE HAEMORRHAGE [None]
